FAERS Safety Report 19595660 (Version 1)
Quarter: 2021Q3

REPORT INFORMATION
  Report Type: Spontaneous
  Country: CN (occurrence: CN)
  Receive Date: 20210722
  Receipt Date: 20210722
  Transmission Date: 20211014
  Serious: Yes (Hospitalization, Other)
  Sender: FDA-Public Use
  Company Number: CN-SUN PHARMACEUTICAL INDUSTRIES LTD-2021R1-304654

PATIENT
  Age: 90 Year
  Sex: Male

DRUGS (1)
  1. AMILORIDE HYDROCHLORIDE/ HYDROCHLOROTHIAZIDE [Suspect]
     Active Substance: AMILORIDE HYDROCHLORIDE\HYDROCHLOROTHIAZIDE
     Indication: OEDEMA PERIPHERAL
     Dosage: UNK UNK, DAILY
     Route: 065

REACTIONS (1)
  - Hyperkalaemia [Unknown]
